FAERS Safety Report 7973022-1 (Version None)
Quarter: 2011Q4

REPORT INFORMATION
  Report Type: 
  Country: None (occurrence: None)
  Receive Date: 20111213
  Receipt Date: 20111202
  Transmission Date: 20120403
  Serious: Yes (Hospitalization)
  Sender: FDA-Public Use
  Company Number: FR-BRISTOL-MYERS SQUIBB COMPANY-16272759

PATIENT
  Age: 64 Year
  Sex: Male

DRUGS (11)
  1. POTASSIUM CHLORIDE [Concomitant]
  2. LEXOMIL [Concomitant]
  3. AMPECYCLAL [Concomitant]
  4. METFORMIN HCL [Concomitant]
  5. NICARDIPINE HCL [Concomitant]
     Dosage: 1 DF=50 UNITS NOS
  6. ZOLPIDEM [Concomitant]
  7. SIMVASTATIN [Concomitant]
  8. FUROSEMIDE [Suspect]
     Route: 048
  9. HALDOL [Concomitant]
  10. BRONCHOKOD [Concomitant]
  11. IRBESARTAN AND HYDROCHLOROTHIAZIDE [Suspect]
     Route: 048

REACTIONS (2)
  - HYPONATRAEMIA [None]
  - CONFUSIONAL STATE [None]
